FAERS Safety Report 12482251 (Version 1)
Quarter: 2016Q2

REPORT INFORMATION
  Report Type: Spontaneous
  Country: US (occurrence: US)
  Receive Date: 20160620
  Receipt Date: 20160620
  Transmission Date: 20160815
  Serious: No
  Sender: FDA-Public Use
  Company Number: US-MYLANLABS-2015M1045302

PATIENT
  Age: 66 Year
  Sex: Male
  Weight: 82.99 kg

DRUGS (2)
  1. PRAVASTATIN SODIUM TABLETS, USP [Concomitant]
     Indication: BLOOD CHOLESTEROL INCREASED
  2. DILTIAZEM HYDROCHLORIDE EXTENDED-RELEASE CAPSULES, USP [Suspect]
     Active Substance: DILTIAZEM HYDROCHLORIDE
     Indication: BLOOD PRESSURE MEASUREMENT
     Dosage: 60 MG, QD
     Route: 048
     Dates: start: 20151117, end: 20151215

REACTIONS (1)
  - Drug ineffective [Recovering/Resolving]

NARRATIVE: CASE EVENT DATE: 20151117
